FAERS Safety Report 9135001 (Version 1)
Quarter: 2013Q1

REPORT INFORMATION
  Report Type: Report from Study
  Country: CA (occurrence: CA)
  Receive Date: 20130304
  Receipt Date: 20130304
  Transmission Date: 20140127
  Serious: Yes (Hospitalization)
  Sender: FDA-Public Use
  Company Number: CA-JNJFOC-20130216328

PATIENT
  Age: 80 Year
  Sex: Male
  Weight: 107.5 kg

DRUGS (7)
  1. REMICADE [Suspect]
     Indication: PSORIASIS
     Route: 042
  2. RAMIPRIL [Concomitant]
     Route: 048
  3. ADALAT [Concomitant]
     Route: 048
  4. ACETYL SALICYLIC ACID [Concomitant]
     Route: 048
  5. METOPROLOL [Concomitant]
     Dosage: BID
     Route: 048
  6. GLICLAZIDE [Concomitant]
     Dosage: BID
     Route: 048
  7. ISOSORBIDE MONONITRATE [Concomitant]
     Route: 065

REACTIONS (3)
  - Constipation [Recovered/Resolved]
  - Vomiting [Recovered/Resolved]
  - Nausea [Recovered/Resolved]
